FAERS Safety Report 4674930-X (Version None)
Quarter: 2005Q2

REPORT INFORMATION
  Report Type: 
  Country: None (occurrence: None)
  Receive Date: 20050526
  Receipt Date: 20050510
  Transmission Date: 20051028
  Serious: Yes (Other)
  Sender: FDA-Public Use
  Company Number: 18303

PATIENT
  Age: 62 Year
  Sex: Female

DRUGS (1)
  1. ACETAZOLAMIDE [Suspect]
     Indication: VERTEBRAL ARTERY OCCLUSION
     Dosage: 1000MG

REACTIONS (1)
  - TRANSIENT ISCHAEMIC ATTACK [None]
